FAERS Safety Report 21966899 (Version 1)
Quarter: 2023Q1

REPORT INFORMATION
  Report Type: Spontaneous
  Country: US (occurrence: US)
  Receive Date: 20230208
  Receipt Date: 20230208
  Transmission Date: 20230418
  Serious: No
  Sender: FDA-Public Use
  Company Number: US-AMNEAL PHARMACEUTICALS-2022-AMRX-00179

PATIENT
  Age: 61 Year
  Sex: Male

DRUGS (2)
  1. LORAZEPAM [Suspect]
     Active Substance: LORAZEPAM
     Indication: Nausea
     Dosage: UNK
     Route: 065
  2. LENVIMA [Concomitant]
     Active Substance: LENVATINIB
     Indication: Renal cancer
     Dosage: 10 MILLIGRAM, DAILY
     Route: 048
     Dates: start: 20211221

REACTIONS (3)
  - Cognitive disorder [Unknown]
  - Somnolence [Unknown]
  - Drug effective for unapproved indication [Unknown]

NARRATIVE: CASE EVENT DATE: 20220113
